FAERS Safety Report 14693858 (Version 2)
Quarter: 2018Q2

REPORT INFORMATION
  Report Type: Spontaneous
  Country: US (occurrence: US)
  Receive Date: 20180329
  Receipt Date: 20180427
  Transmission Date: 20180711
  Serious: Yes (Hospitalization, Other)
  Sender: FDA-Public Use
  Company Number: US-GLAXOSMITHKLINE-US2018052269

PATIENT
  Sex: Female
  Weight: 42.63 kg

DRUGS (1)
  1. ADVAIR DISKUS [Suspect]
     Active Substance: FLUTICASONE PROPIONATE\SALMETEROL XINAFOATE
     Indication: LUNG TRANSPLANT
     Dosage: 1 PUFF(S), BID
     Route: 055
     Dates: start: 201605

REACTIONS (5)
  - Off label use [Unknown]
  - Radiotherapy to lung [Unknown]
  - Lung neoplasm malignant [Unknown]
  - Lung lobectomy [Unknown]
  - Product use in unapproved indication [Unknown]
